FAERS Safety Report 4433127-9 (Version None)
Quarter: 2004Q3

REPORT INFORMATION
  Report Type: 
  Country: None (occurrence: None)
  Receive Date: 20040823
  Receipt Date: 20040805
  Transmission Date: 20050211
  Serious: No
  Sender: FDA-Public Use
  Company Number: 2004-DE-04326GD

PATIENT
  Age: 54 Year
  Sex: Male

DRUGS (3)
  1. FLOMAX [Suspect]
  2. DIPHENHYDRAMINE HCL [Suspect]
  3. TRAMADOL HCL [Suspect]
     Indication: BACK PAIN

REACTIONS (3)
  - CIRCULATORY COLLAPSE [None]
  - FATIGUE [None]
  - LOSS OF CONSCIOUSNESS [None]
